FAERS Safety Report 18252252 (Version 1)
Quarter: 2020Q3

REPORT INFORMATION
  Report Type: Spontaneous
  Country: US (occurrence: US)
  Receive Date: 20200910
  Receipt Date: 20200910
  Transmission Date: 20201103
  Serious: No
  Sender: FDA-Public Use
  Company Number: US-FARMAPROD-202005-0754

PATIENT
  Sex: Female

DRUGS (19)
  1. ATORVASTATIN CALCIUM. [Concomitant]
     Active Substance: ATORVASTATIN CALCIUM
  2. CLOPIDOGREL [Concomitant]
     Active Substance: CLOPIDOGREL BISULFATE
  3. MINOCYCLINE [Concomitant]
     Active Substance: MINOCYCLINE HYDROCHLORIDE
  4. GLIMEPIRIDE. [Concomitant]
     Active Substance: GLIMEPIRIDE
  5. ASPIR [Concomitant]
     Active Substance: ASPIRIN
  6. VITAMINE D [Concomitant]
     Active Substance: CHOLECALCIFEROL
  7. SYSTANE GEL [Concomitant]
  8. OMEPRAZOLE?SODIUM BICARBONATE [Concomitant]
     Active Substance: OMEPRAZOLE\SODIUM BICARBONATE
  9. CARVEDILOL. [Concomitant]
     Active Substance: CARVEDILOL
  10. MELOXICAM. [Concomitant]
     Active Substance: MELOXICAM
  11. GABAPENTIN. [Concomitant]
     Active Substance: GABAPENTIN
  12. BIOTIN [Concomitant]
     Active Substance: BIOTIN
  13. OXYBUTYNIN CHLORIDE. [Concomitant]
     Active Substance: OXYBUTYNIN CHLORIDE
  14. CEFTAZIDIME?SODIUM CARBONATE [Concomitant]
  15. LEVOTHYROXINE SODIUM. [Concomitant]
     Active Substance: LEVOTHYROXINE SODIUM
     Dosage: VIAL
  16. BENEFIBER [Concomitant]
     Active Substance: STARCH, WHEAT
     Dosage: 3 G/3.5 G POWD PACK
  17. OXERVATE [Suspect]
     Active Substance: CENEGERMIN-BKBJ
     Indication: HYPOAESTHESIA EYE
     Route: 047
     Dates: start: 20200519
  18. CALCIUM + D3 [Concomitant]
     Active Substance: CALCIUM\CHOLECALCIFEROL
     Dosage: 600?500 MG EXTENDED RELEASE TABLET
  19. SPIRONOLACTONE?HCTZ [Concomitant]
     Active Substance: HYDROCHLOROTHIAZIDE\SPIRONOLACTONE

REACTIONS (3)
  - Drug ineffective [Unknown]
  - Eye pain [Unknown]
  - Eye irritation [Unknown]
